FAERS Safety Report 14694311 (Version 2)
Quarter: 2018Q2

REPORT INFORMATION
  Report Type: Spontaneous
  Country: JP (occurrence: JP)
  Receive Date: 20180329
  Receipt Date: 20180402
  Transmission Date: 20180711
  Serious: Yes (Congenital Anomaly, Other)
  Sender: FDA-Public Use
  Company Number: JP-BAYER-2018-057345

PATIENT
  Sex: Female
  Weight: .16 kg

DRUGS (3)
  1. IMMUNOGLOBULINS NOS [Concomitant]
     Active Substance: IMMUNE GLOBULIN NOS
  2. HEPARIN [Concomitant]
     Active Substance: HEPARIN SODIUM
  3. BAYASPIRIN 100 MG [Suspect]
     Active Substance: ASPIRIN
     Route: 064

REACTIONS (4)
  - Dentofacial anomaly [None]
  - Foetal exposure during pregnancy [None]
  - Renal tubular disorder [None]
  - Skeletal dysplasia [None]
